FAERS Safety Report 8472782-3 (Version None)
Quarter: 2012Q2

REPORT INFORMATION
  Report Type: 
  Country: None (occurrence: None)
  Receive Date: 20120627
  Receipt Date: 20120614
  Transmission Date: 20120825
  Serious: Yes (Other)
  Sender: FDA-Public Use
  Company Number: AU-CELGENEUS-008-21880-11114038

PATIENT
  Sex: Male
  Weight: 72 kg

DRUGS (12)
  1. ACETAMINOPHEN [Concomitant]
     Route: 048
     Dates: start: 20091008
  2. OCTAGAM [Concomitant]
     Indication: IMMUNOGLOBULINS DECREASED
     Route: 041
     Dates: start: 20091105
  3. ASPIRIN [Concomitant]
     Dosage: 100 MILLIGRAM
     Route: 048
     Dates: start: 20090824
  4. REVLIMID [Suspect]
     Indication: MULTIPLE MYELOMA
     Route: 048
     Dates: start: 20090824, end: 20110929
  5. ZYRTEC [Concomitant]
     Route: 048
     Dates: start: 20110201
  6. ZOMETA [Concomitant]
     Indication: PROPHYLAXIS
     Dosage: .1333 MILLIGRAM
     Route: 041
     Dates: start: 20070810
  7. MAXOLON [Concomitant]
     Indication: NAUSEA
     Route: 048
     Dates: start: 20090824
  8. PANTOPRAZOLE [Concomitant]
     Dosage: 40 MILLIGRAM
     Route: 048
     Dates: start: 20060101
  9. TEMAZEPAM [Concomitant]
     Indication: INSOMNIA
     Route: 048
     Dates: start: 20070101
  10. PANOBINOSTAT [Suspect]
     Indication: MULTIPLE MYELOMA
     Route: 048
     Dates: start: 20090824, end: 20110929
  11. DEXAMETHASONE [Suspect]
     Indication: MULTIPLE MYELOMA
     Route: 065
     Dates: start: 20090824, end: 20110929
  12. ZOMETA [Concomitant]
     Indication: OSTEOPENIA

REACTIONS (1)
  - SQUAMOUS CELL CARCINOMA OF SKIN [None]
